FAERS Safety Report 18817111 (Version 1)
Quarter: 2021Q1

REPORT INFORMATION
  Report Type: Spontaneous
  Country: US (occurrence: US)
  Receive Date: 20210201
  Receipt Date: 20210201
  Transmission Date: 20210419
  Serious: Yes (Other)
  Sender: FDA-Public Use
  Company Number: US-SA-2021SA028098

PATIENT
  Age: 65 Year
  Sex: Male

DRUGS (1)
  1. AUBAGIO [Suspect]
     Active Substance: TERIFLUNOMIDE
     Indication: MULTIPLE SCLEROSIS
     Dosage: 14 MG, QD
     Route: 048
     Dates: start: 202008

REACTIONS (8)
  - Fatigue [Unknown]
  - Feeling abnormal [Unknown]
  - Stress [Unknown]
  - Memory impairment [Unknown]
  - Multiple sclerosis [Unknown]
  - Micturition urgency [Unknown]
  - Frequent bowel movements [Unknown]
  - Product storage error [Unknown]
